FAERS Safety Report 4590498-0 (Version None)
Quarter: 2005Q1

REPORT INFORMATION
  Report Type: 
  Country: None (occurrence: None)
  Receive Date: 20050224
  Receipt Date: 20030114
  Transmission Date: 20050727
  Serious: Yes (Hospitalization, Disabling)
  Sender: FDA-Public Use
  Company Number: US-GLAXOSMITHKLINE-A0392806A

PATIENT
  Age: 36 Year
  Sex: Male

DRUGS (6)
  1. CONTAC 12 HOUR [Suspect]
     Route: 048
     Dates: start: 19990616
  2. HUMULIN N [Concomitant]
     Dosage: 40UNIT IN THE MORNING
  3. HUMULIN R [Concomitant]
     Dosage: 10UNIT IN THE MORNING
  4. PROPULSID [Concomitant]
  5. PROCARDIA [Concomitant]
  6. ALDORIL 15 [Concomitant]

REACTIONS (45)
  - ACTIVITIES OF DAILY LIVING IMPAIRED [None]
  - AMNESIA [None]
  - APHASIA [None]
  - AREFLEXIA [None]
  - ASTHENIA [None]
  - BLOOD GLUCOSE INCREASED [None]
  - BLOOD PRESSURE INCREASED [None]
  - CEREBRAL ARTERY OCCLUSION [None]
  - CEREBRAL INFARCTION [None]
  - CEREBROVASCULAR ACCIDENT [None]
  - CHEST PAIN [None]
  - COAGULOPATHY [None]
  - DEPRESSION [None]
  - DYSARTHRIA [None]
  - DYSPEPSIA [None]
  - DYSPHAGIA [None]
  - DYSPHASIA [None]
  - DYSPHONIA [None]
  - EXTENSOR PLANTAR RESPONSE [None]
  - FACIAL PARESIS [None]
  - GAIT DISTURBANCE [None]
  - GASTRITIS [None]
  - GAZE PALSY [None]
  - HAEMORRHAGE [None]
  - HEADACHE [None]
  - HEMIPARESIS [None]
  - HEMIPLEGIA [None]
  - INJURY [None]
  - ISCHAEMIA [None]
  - ISCHAEMIC STROKE [None]
  - LETHARGY [None]
  - MYOCARDIAL INFARCTION [None]
  - NAUSEA [None]
  - NECK PAIN [None]
  - PERONEAL NERVE PALSY [None]
  - PHARYNGOLARYNGEAL PAIN [None]
  - PROTEIN C DECREASED [None]
  - PROTEIN C DEFICIENCY [None]
  - PROTEIN S DECREASED [None]
  - PROTEIN S DEFICIENCY [None]
  - RENAL DISORDER [None]
  - TONGUE PARALYSIS [None]
  - VOMITING [None]
  - WALKING AID USER [None]
  - WHEELCHAIR USER [None]
